FAERS Safety Report 4732796-3 (Version None)
Quarter: 2005Q3

REPORT INFORMATION
  Report Type: 
  Country: None (occurrence: None)
  Receive Date: 20050801
  Receipt Date: 20050719
  Transmission Date: 20060218
  Serious: Yes (Other)
  Sender: FDA-Public Use
  Company Number: 082-20785-05070397

PATIENT
  Age: 40 Year
  Sex: Male

DRUGS (1)
  1. THALIDOMIDE- PHARMION (THALIDOMIDE) [Suspect]
     Indication: MULTIPLE MYELOMA
     Dosage: 200 MG INITIAL DOSE, THEN TO 400 MG AFTER WEEKS 2 WEEKS, QD, ORAL
     Route: 048

REACTIONS (6)
  - CRANIAL NERVE DISORDER [None]
  - MALIGNANT NEOPLASM PROGRESSION [None]
  - NASAL POLYPS [None]
  - PLASMACYTOMA [None]
  - STEM CELL TRANSPLANT [None]
  - SUBCUTANEOUS NODULE [None]
